FAERS Safety Report 7584013-7 (Version None)
Quarter: 2011Q2

REPORT INFORMATION
  Report Type: 
  Country: None (occurrence: None)
  Receive Date: 20110630
  Receipt Date: 20110620
  Transmission Date: 20111010
  Serious: Yes (Hospitalization, Other)
  Sender: FDA-Public Use
  Company Number: FR-JNJFOC-20110501421

PATIENT
  Sex: Male
  Weight: 60 kg

DRUGS (5)
  1. VALACYCLOVIR [Concomitant]
     Route: 048
  2. AZATHIOPRINE [Concomitant]
     Route: 048
  3. SOLU-MEDROL [Concomitant]
     Route: 048
  4. LOVENOX [Concomitant]
  5. REMICADE [Suspect]
     Indication: COLITIS ULCERATIVE
     Route: 042
     Dates: start: 20100629, end: 20100713

REACTIONS (1)
  - ILEOSTOMY CLOSURE [None]
